FAERS Safety Report 6138286-8 (Version None)
Quarter: 2009Q1

REPORT INFORMATION
  Report Type: 
  Country: None (occurrence: None)
  Receive Date: 20090331
  Receipt Date: 20090324
  Transmission Date: 20090719
  Serious: Yes (Other)
  Sender: FDA-Public Use
  Company Number: PHHY2009CA07391

PATIENT
  Sex: Female

DRUGS (6)
  1. ACLASTA [Suspect]
     Indication: OSTEOPOROSIS
     Dosage: ONCE YEARLY
     Route: 042
     Dates: start: 20081211
  2. COUMADIN [Suspect]
     Dosage: 4 MG
  3. FUROSEMIDE [Concomitant]
     Dosage: UNK
     Dates: start: 20050101
  4. SLOW-K [Concomitant]
     Dosage: UNK
     Dates: start: 20050101
  5. LANOXIN [Concomitant]
     Dosage: UNK
     Dates: start: 20050101
  6. DILTIAZEM [Concomitant]
     Dosage: UNK
     Dates: start: 19990101

REACTIONS (1)
  - INTERNATIONAL NORMALISED RATIO INCREASED [None]
